FAERS Safety Report 21674608 (Version 1)
Quarter: 2022Q4

REPORT INFORMATION
  Report Type: Report from Study
  Country: IT (occurrence: IT)
  Receive Date: 20221202
  Receipt Date: 20221202
  Transmission Date: 20230113
  Serious: Yes (Other)
  Sender: FDA-Public Use
  Company Number: None

PATIENT
  Age: 14 Year
  Sex: Male
  Weight: 40 kg

DRUGS (2)
  1. VINCRISTINE [Suspect]
     Active Substance: VINCRISTINE
     Indication: Neuroblastoma
     Dosage: VCR 2.0 MG IN PUSHES, VINCRISTINA TEVA ITALIA
     Route: 065
     Dates: start: 20221107, end: 20221107
  2. CISPLATIN [Suspect]
     Active Substance: CISPLATIN
     Indication: Neuroblastoma
     Dosage: CDDP 100 MG IC IN 24 HOURS, DURATION : 1 DAY
     Route: 065
     Dates: start: 20221107, end: 20221108

REACTIONS (3)
  - Pancytopenia [Recovering/Resolving]
  - Nausea [Unknown]
  - Headache [Unknown]

NARRATIVE: CASE EVENT DATE: 20221109
